FAERS Safety Report 5802712-1 (Version None)
Quarter: 2008Q2

REPORT INFORMATION
  Report Type: 
  Country: None (occurrence: None)
  Receive Date: 20080627
  Receipt Date: 20070831
  Transmission Date: 20081010
  Serious: Yes (Other)
  Sender: FDA-Public Use
  Company Number: 2007-04049

PATIENT
  Age: 50 Year
  Sex: Female
  Weight: 63.9 kg

DRUGS (1)
  1. INFED [Suspect]
     Dosage: 0.5 ML X 30SEC SINGLE, TEST DOSE, INTRAVENOUS
     Route: 042
     Dates: start: 20070831, end: 20070831

REACTIONS (5)
  - ANAPHYLACTIC REACTION [None]
  - DYSPHAGIA [None]
  - LIP SWELLING [None]
  - THROAT IRRITATION [None]
  - THROAT TIGHTNESS [None]
